FAERS Safety Report 4806059-1 (Version None)
Quarter: 2005Q4

REPORT INFORMATION
  Report Type: 
  Country: None (occurrence: None)
  Receive Date: 20051021
  Receipt Date: 20041019
  Transmission Date: 20060501
  Serious: Yes (Hospitalization)
  Sender: FDA-Public Use
  Company Number: FR-ROCHE-383688

PATIENT
  Age: 64 Year
  Sex: Female
  Weight: 88 kg

DRUGS (4)
  1. XENICAL [Suspect]
     Indication: OBESITY
     Route: 048
     Dates: start: 20040108, end: 20040531
  2. SOTALOL HCL [Concomitant]
     Dosage: ROUTE REPORTED AS PER-LINGUAL
     Route: 048
  3. MEDIATOR [Concomitant]
     Route: 065
     Dates: start: 20040209
  4. ELISOR [Concomitant]
     Indication: HYPERCHOLESTEROLAEMIA
     Route: 065

REACTIONS (6)
  - ARTHRALGIA [None]
  - MYALGIA [None]
  - OEDEMA [None]
  - PRURITUS [None]
  - SCLERODERMA [None]
  - SKIN BURNING SENSATION [None]
